FAERS Safety Report 5387721-1 (Version None)
Quarter: 2007Q3

REPORT INFORMATION
  Report Type: 
  Country: None (occurrence: None)
  Receive Date: 20070716
  Receipt Date: 20070710
  Transmission Date: 20080115
  Serious: Yes (Other)
  Sender: FDA-Public Use
  Company Number: A0662833A

PATIENT
  Age: 17 Year
  Sex: Male

DRUGS (1)
  1. LAMICTAL [Suspect]
     Indication: DRUG USE FOR UNKNOWN INDICATION
     Dosage: 3000MG SINGLE DOSE
     Route: 048

REACTIONS (2)
  - OVERDOSE [None]
  - SUICIDE ATTEMPT [None]
